FAERS Safety Report 5646855-4 (Version None)
Quarter: 2008Q1

REPORT INFORMATION
  Report Type: 
  Country: None (occurrence: None)
  Receive Date: 20080303
  Receipt Date: 20080229
  Transmission Date: 20080703
  Serious: Yes (Hospitalization)
  Sender: FDA-Public Use
  Company Number: A0712622A

PATIENT
  Age: 38 Year
  Sex: Male

DRUGS (2)
  1. ALLI [Suspect]
  2. NO CONCURRENT MEDICATION [Concomitant]

REACTIONS (9)
  - CHOLECYSTITIS [None]
  - CHOLELITHIASIS [None]
  - CONSTIPATION [None]
  - DIARRHOEA [None]
  - FLATULENCE [None]
  - FREQUENT BOWEL MOVEMENTS [None]
  - GASTROOESOPHAGEAL REFLUX DISEASE [None]
  - PAIN [None]
  - VIRAL INFECTION [None]
